FAERS Safety Report 5132776-2 (Version None)
Quarter: 2006Q4

REPORT INFORMATION
  Report Type: 
  Country: None (occurrence: None)
  Receive Date: 20061023
  Receipt Date: 20061018
  Transmission Date: 20070319
  Serious: Yes (Life-Threatening, Hospitalization, Other)
  Sender: FDA-Public Use
  Company Number: US-BRISTOL-MYERS SQUIBB COMPANY-13546049

PATIENT
  Age: 61 Year
  Sex: Female
  Weight: 72 kg

DRUGS (5)
  1. TAXOL [Suspect]
     Indication: ADENOCARCINOMA
     Route: 042
     Dates: start: 20060727, end: 20060727
  2. DECADRON [Concomitant]
     Route: 042
  3. PEPCID [Concomitant]
     Route: 048
  4. ZOFRAN [Concomitant]
     Route: 042
  5. BENADRYL [Concomitant]
     Route: 042

REACTIONS (4)
  - BLOOD PRESSURE ABNORMAL [None]
  - HYPERHIDROSIS [None]
  - PALLOR [None]
  - URINARY INCONTINENCE [None]
